FAERS Safety Report 19840905 (Version 7)
Quarter: 2021Q4

REPORT INFORMATION
  Report Type: Spontaneous
  Country: JP (occurrence: JP)
  Receive Date: 20210916
  Receipt Date: 20211220
  Transmission Date: 20220303
  Serious: Yes (Hospitalization, Other)
  Sender: FDA-Public Use
  Company Number: JP-EISAI-202106059_FYC_P_1

PATIENT
  Age: 10 Year
  Sex: Male
  Weight: 33 kg

DRUGS (11)
  1. PERAMPANEL [Suspect]
     Active Substance: PERAMPANEL
     Indication: Epilepsy
     Route: 048
  2. PERAMPANEL [Suspect]
     Active Substance: PERAMPANEL
     Route: 048
     Dates: start: 20200212, end: 20200311
  3. PERAMPANEL [Suspect]
     Active Substance: PERAMPANEL
     Route: 048
     Dates: start: 20200312, end: 20200508
  4. PERAMPANEL [Suspect]
     Active Substance: PERAMPANEL
     Route: 048
     Dates: start: 20200509, end: 20201001
  5. PERAMPANEL [Suspect]
     Active Substance: PERAMPANEL
     Route: 048
     Dates: start: 20201002
  6. PERAMPANEL [Suspect]
     Active Substance: PERAMPANEL
     Route: 048
  7. PERAMPANEL [Suspect]
     Active Substance: PERAMPANEL
     Route: 048
  8. DEPAKENE [Concomitant]
     Active Substance: VALPROIC ACID
     Indication: Product used for unknown indication
     Route: 048
     Dates: start: 20200901
  9. LAMICTAL [Concomitant]
     Active Substance: LAMOTRIGINE
     Indication: Product used for unknown indication
     Route: 048
     Dates: start: 20200901
  10. NITRAZEPAM [Concomitant]
     Active Substance: NITRAZEPAM
     Indication: Product used for unknown indication
     Route: 048
  11. ROZEREM [Concomitant]
     Active Substance: RAMELTEON
     Indication: Product used for unknown indication
     Dosage: DOSE AND FREQUENCY UNKNOWN
     Route: 048

REACTIONS (13)
  - Altered state of consciousness [Recovered/Resolved]
  - Dehydration [Recovered/Resolved]
  - Hypernatraemia [Unknown]
  - Hypophagia [Recovered/Resolved]
  - Urine output decreased [Unknown]
  - Gait disturbance [Recovered/Resolved]
  - Somnolence [Recovered/Resolved]
  - Decreased appetite [Recovered/Resolved]
  - Asthenia [Recovered/Resolved]
  - Mood altered [Recovered/Resolved]
  - Pyrexia [Unknown]
  - Weight decreased [Recovered/Resolved]
  - Anticonvulsant drug level increased [Recovered/Resolved]

NARRATIVE: CASE EVENT DATE: 20200101
